FAERS Safety Report 6787775-1 (Version None)
Quarter: 2010Q2

REPORT INFORMATION
  Report Type: 
  Country: None (occurrence: None)
  Receive Date: 20100623
  Receipt Date: 20080328
  Transmission Date: 20101027
  Serious: No
  Sender: FDA-Public Use
  Company Number: US-PFIZER INC-2007065499

PATIENT
  Sex: Female
  Weight: 62 kg

DRUGS (5)
  1. AROMASIN [Suspect]
     Indication: BREAST CANCER METASTATIC
     Route: 048
     Dates: start: 20070401
  2. THERAPEUTIC RADIOPHARMACEUTICALS [Concomitant]
     Indication: CENTRAL NERVOUS SYSTEM LESION
  3. MULTI-VITAMINS [Concomitant]
  4. VITAMIN C [Concomitant]
  5. FASLODEX [Concomitant]

REACTIONS (6)
  - BLOOD GLUCOSE INCREASED [None]
  - BONE PAIN [None]
  - DIZZINESS [None]
  - MYALGIA [None]
  - PAIN IN EXTREMITY [None]
  - RED BLOOD CELL COUNT DECREASED [None]
